FAERS Safety Report 6255593-9 (Version None)
Quarter: 2009Q3

REPORT INFORMATION
  Report Type: 
  Country: None (occurrence: None)
  Receive Date: 20090702
  Receipt Date: 20090618
  Transmission Date: 20100115
  Serious: Yes (Hospitalization)
  Sender: FDA-Public Use
  Company Number: IT-ELI_LILLY_AND_COMPANY-IT200906006546

PATIENT
  Sex: Female

DRUGS (3)
  1. CYMBALTA [Suspect]
     Indication: HEADACHE
     Dosage: 30 MG, UNKNOWN
     Route: 048
     Dates: start: 20090606, end: 20090606
  2. LAROXYL [Concomitant]
     Dosage: 40 MG/ML D/F, UNKNOWN
     Route: 048
  3. GINODEN [Concomitant]
     Dosage: 0.075MG/0.03MG
     Route: 065

REACTIONS (10)
  - ASTHENIA [None]
  - FEAR [None]
  - HALLUCINATION [None]
  - HEAT RASH [None]
  - MEDICATION ERROR [None]
  - NAUSEA [None]
  - OFF LABEL USE [None]
  - SOMNOLENCE [None]
  - TACHYCARDIA [None]
  - VOMITING [None]
